FAERS Safety Report 19892736 (Version 2)
Quarter: 2021Q4

REPORT INFORMATION
  Report Type: Spontaneous
  Country: FR (occurrence: FR)
  Receive Date: 20210929
  Receipt Date: 20211021
  Transmission Date: 20220304
  Serious: Yes (Hospitalization, Other)
  Sender: FDA-Public Use
  Company Number: FR-AFSSAPS-AN20213601

PATIENT
  Age: 77 Year
  Sex: Female

DRUGS (11)
  1. VALACYCLOVIR [Suspect]
     Active Substance: VALACYCLOVIR HYDROCHLORIDE
     Indication: Anti-infective therapy
     Dosage: 1 GRAM, DAILY
     Route: 048
     Dates: start: 20210717
  2. TRAMADOL [Suspect]
     Active Substance: TRAMADOL
     Indication: Pain
     Dosage: 50 MILLIGRAM, 3 AS NECESSARY
     Route: 048
     Dates: start: 20210708, end: 20210805
  3. FENTANYL [Suspect]
     Active Substance: FENTANYL
     Indication: Oedema
     Dosage: 12 MICROGRAM, DAILY
     Route: 062
     Dates: start: 20210730
  4. FENTANYL [Suspect]
     Active Substance: FENTANYL
     Indication: Oedema
  5. VELCADE [Suspect]
     Active Substance: BORTEZOMIB
     Indication: Plasma cell myeloma
     Dosage: 14 MILLIGRAM, UNK
     Route: 058
     Dates: start: 20210705, end: 20210810
  6. VELCADE [Suspect]
     Active Substance: BORTEZOMIB
     Indication: Plasma cell myeloma
  7. DEXAMETHASONE [Suspect]
     Active Substance: DEXAMETHASONE
     Indication: Plasma cell myeloma
     Dosage: 9.5 MILLIGRAM, DAILY
     Route: 048
     Dates: start: 20210705, end: 20210810
  8. DARATUMUMAB [Suspect]
     Active Substance: DARATUMUMAB
     Indication: Plasma cell myeloma
     Dosage: 1800 MILLIGRAM, WEEKLY
     Route: 058
     Dates: start: 20210705, end: 20210810
  9. DARATUMUMAB [Suspect]
     Active Substance: DARATUMUMAB
     Indication: Plasma cell myeloma
  10. FUROSEMIDE [Suspect]
     Active Substance: FUROSEMIDE
     Indication: Oedema
     Dosage: 40 MILLIGRAM, DAILY
     Route: 048
     Dates: start: 202107
  11. ERYTHROPOIETIN [Suspect]
     Active Substance: ERYTHROPOIETIN
     Indication: Anaemia
     Dosage: 1 DOSAGE FORM, WEEKLY
     Route: 058
     Dates: start: 20210705, end: 20210805

REACTIONS (2)
  - Ejection fraction decreased [Not Recovered/Not Resolved]
  - Atrial fibrillation [Not Recovered/Not Resolved]

NARRATIVE: CASE EVENT DATE: 20210802
